FAERS Safety Report 6680978-6 (Version None)
Quarter: 2010Q2

REPORT INFORMATION
  Report Type: 
  Country: None (occurrence: None)
  Receive Date: 20100414
  Receipt Date: 20100408
  Transmission Date: 20101027
  Serious: Yes (Other)
  Sender: FDA-Public Use
  Company Number: CHPA2010US06376

PATIENT
  Sex: Female

DRUGS (2)
  1. BENEFIBER W/ WHEAT DEXTRIN (NCH) [Suspect]
     Indication: BOWEL MOVEMENT IRREGULARITY
     Dosage: 2 TSP, 2-3 TIMES A DAY
     Route: 048
  2. DRUG THERAPY NOS [Concomitant]
     Dosage: 0.5 DF, QD
     Route: 065

REACTIONS (3)
  - CONSTIPATION [None]
  - OFF LABEL USE [None]
  - THERAPEUTIC PROCEDURE [None]
